FAERS Safety Report 5795596-1 (Version None)
Quarter: 2008Q2

REPORT INFORMATION
  Report Type: 
  Country: None (occurrence: None)
  Receive Date: 20080630
  Receipt Date: 20080626
  Transmission Date: 20081010
  Serious: Yes (Death, Other)
  Sender: FDA-Public Use
  Company Number: MX-ABBOTT-08P-107-0459811-00

PATIENT
  Age: 8 Year
  Sex: Male
  Weight: 27 kg

DRUGS (6)
  1. SEVORANE LIQUID FOR INHALATION [Suspect]
     Indication: ANAESTHESIA
     Route: 055
     Dates: start: 20080612, end: 20080612
  2. THIOPENTAL SODIUM [Concomitant]
     Indication: INDUCTION AND MAINTENANCE OF ANAESTHESIA
     Route: 042
     Dates: start: 20080612, end: 20080612
  3. NALBUPHINE [Concomitant]
     Indication: INDUCTION AND MAINTENANCE OF ANAESTHESIA
     Route: 042
     Dates: start: 20080612, end: 20080612
  4. ATROPINE [Concomitant]
     Indication: INDUCTION AND MAINTENANCE OF ANAESTHESIA
     Route: 042
     Dates: start: 20080612, end: 20080612
  5. CEFALOTIN [Concomitant]
     Indication: DRUG USE FOR UNKNOWN INDICATION
     Route: 042
     Dates: start: 20080612, end: 20080612
  6. OXYGEN [Concomitant]
     Indication: DRUG USE FOR UNKNOWN INDICATION
     Dosage: 100%
     Route: 055
     Dates: start: 20080612, end: 20080612

REACTIONS (9)
  - ARRHYTHMIA [None]
  - ERYTHEMA [None]
  - HYPERTHERMIA MALIGNANT [None]
  - MEAN ARTERIAL PRESSURE DECREASED [None]
  - MUSCLE SPASMS [None]
  - PCO2 INCREASED [None]
  - RASH [None]
  - SKIN WARM [None]
  - TACHYCARDIA [None]
